FAERS Safety Report 25349543 (Version 2)
Quarter: 2025Q2

REPORT INFORMATION
  Report Type: Report from Study
  Country: US (occurrence: US)
  Receive Date: 20250522
  Receipt Date: 20250619
  Transmission Date: 20250717
  Serious: Yes (Other)
  Sender: ABBVIE
  Company Number: US-ABBVIE-6286860

PATIENT
  Age: 56 Year
  Sex: Female

DRUGS (2)
  1. CREON [Suspect]
     Active Substance: PANCRELIPASE AMYLASE\PANCRELIPASE LIPASE\PANCRELIPASE PROTEASE
     Indication: Endocrine pancreatic disorder
     Route: 048
  2. LIBTAYO [Suspect]
     Active Substance: CEMIPLIMAB-RWLC
     Indication: Product used for unknown indication
     Route: 065

REACTIONS (16)
  - Basal cell carcinoma [Not Recovered/Not Resolved]
  - Pancreatic failure [Unknown]
  - Illness [Not Recovered/Not Resolved]
  - Unevaluable event [Unknown]
  - Fatigue [Unknown]
  - Pain [Unknown]
  - Spinal fusion surgery [Unknown]
  - Demyelination [Unknown]
  - Gastrointestinal injury [Unknown]
  - Colitis microscopic [Unknown]
  - Cyst [Unknown]
  - Micrographic skin surgery [Unknown]
  - Dry eye [Unknown]
  - Neurogenic bladder [Unknown]
  - Spinal laminectomy [Unknown]
  - Herpes zoster [Unknown]

NARRATIVE: CASE EVENT DATE: 20230101
